FAERS Safety Report 9337737 (Version 1)
Quarter: 2013Q2

REPORT INFORMATION
  Report Type: Spontaneous
  Country: FR (occurrence: FR)
  Receive Date: 20130607
  Receipt Date: 20130607
  Transmission Date: 20140414
  Serious: Yes (Hospitalization, Other)
  Sender: FDA-Public Use
  Company Number: FR-ASTRAZENECA-2013SE39817

PATIENT
  Age: 22959 Day
  Sex: Male

DRUGS (3)
  1. SYMBICORT TBH [Suspect]
     Indication: BRONCHITIS
     Route: 055
     Dates: start: 20130117, end: 20130121
  2. DERINOX [Suspect]
     Indication: BRONCHITIS
     Route: 045
     Dates: start: 20130117, end: 20130121
  3. PYOSTACINE [Suspect]
     Indication: BRONCHITIS
     Route: 065
     Dates: start: 20130117, end: 20130121

REACTIONS (3)
  - Dyspnoea [Recovered/Resolved]
  - Rash [Recovered/Resolved]
  - Urticaria [Recovered/Resolved]
